FAERS Safety Report 9363317 (Version 1)
Quarter: 2013Q2

REPORT INFORMATION
  Report Type: Spontaneous
  Country: FR (occurrence: FR)
  Receive Date: 20130624
  Receipt Date: 20130624
  Transmission Date: 20140414
  Serious: Yes (Hospitalization, Other)
  Sender: FDA-Public Use
  Company Number: FR-MERCK-1306FRA006327

PATIENT
  Age: 19 Year
  Sex: Female

DRUGS (2)
  1. VARNOLINE CONTINU [Suspect]
     Dosage: 1 DF, QD
     Route: 048
     Dates: start: 201201, end: 201301
  2. ETHINYL ESTRADIOL (+) LEVONORGESTREL [Suspect]
     Dosage: 1 DF, QD
     Route: 048
     Dates: start: 201302, end: 201304

REACTIONS (2)
  - Systemic lupus erythematosus [Unknown]
  - Arthralgia [Recovered/Resolved]
